APPROVED DRUG PRODUCT: NEBCIN
Active Ingredient: TOBRAMYCIN SULFATE
Strength: EQ 10MG BASE/ML
Dosage Form/Route: INJECTABLE;INJECTION
Application: A062707 | Product #001
Applicant: ELI LILLY AND CO
Approved: Apr 29, 1987 | RLD: No | RS: No | Type: DISCN